FAERS Safety Report 12787048 (Version 1)
Quarter: 2016Q3

REPORT INFORMATION
  Report Type: Spontaneous
  Country: US (occurrence: US)
  Receive Date: 20160927
  Receipt Date: 20160927
  Transmission Date: 20161109
  Serious: No
  Sender: FDA-Public Use
  Company Number: US-PFIZER INC-2016444083

PATIENT
  Age: 92 Year
  Sex: Female
  Weight: 68 kg

DRUGS (1)
  1. PREMARIN [Suspect]
     Active Substance: ESTROGENS, CONJUGATED
     Indication: ATROPHIC VULVOVAGINITIS

REACTIONS (8)
  - Vulvovaginal pain [Unknown]
  - Vulvovaginal burning sensation [Unknown]
  - Drug ineffective [Unknown]
  - Feeling abnormal [Unknown]
  - Intentional product misuse [Unknown]
  - Urticaria [Unknown]
  - Swollen tongue [Unknown]
  - Condition aggravated [Unknown]
